FAERS Safety Report 6880975-1 (Version None)
Quarter: 2010Q2

REPORT INFORMATION
  Report Type: 
  Country: None (occurrence: None)
  Receive Date: 20100630
  Receipt Date: 20090724
  Transmission Date: 20101027
  Serious: Yes (Other)
  Sender: FDA-Public Use
  Company Number: 2009225329

PATIENT
  Age: 60 Year
  Sex: Female
  Weight: 52.2 kg

DRUGS (2)
  1. AZITHROMYCIN [Suspect]
     Indication: EAR INFECTION
     Dates: start: 20090401, end: 20090601
  2. DOXYCYCLINE HYCLATE [Suspect]
     Indication: EAR INFECTION
     Dates: start: 20090101, end: 20090101

REACTIONS (1)
  - VERTIGO [None]
